FAERS Safety Report 9445702 (Version 6)
Quarter: 2014Q2

REPORT INFORMATION
  Report Type: Spontaneous
  Country: JP (occurrence: JP)
  Receive Date: 20130807
  Receipt Date: 20140501
  Transmission Date: 20141212
  Serious: Yes (Hospitalization)
  Sender: FDA-Public Use
  Company Number: JP-LUNDBECK-DKLU1092812

PATIENT
  Age: 5 Year
  Sex: Female

DRUGS (15)
  1. VIGABATRIN (FOR ORAL SOLUTION) [Suspect]
     Indication: INFANTILE SPASMS
     Route: 048
     Dates: start: 20130212
  2. VIGABATRIN (FOR ORAL SOLUTION) [Suspect]
     Route: 048
  3. VIGABATRIN (FOR ORAL SOLUTION) [Suspect]
     Route: 048
     Dates: start: 20130729
  4. VIGABATRIN (FOR ORAL SOLUTION) [Suspect]
     Route: 048
  5. VIGABATRIN (FOR ORAL SOLUTION) [Suspect]
     Route: 048
     Dates: start: 20140414
  6. VIGABATRIN (FOR ORAL SOLUTION) [Suspect]
     Route: 048
     Dates: start: 20140424
  7. CARBAMAZEPINE [Concomitant]
     Indication: PRODUCT USED FOR UNKNOWN INDICATION
     Dates: start: 20131126
  8. PRANLUKAST [Concomitant]
     Indication: PRODUCT USED FOR UNKNOWN INDICATION
     Dates: start: 20120306
  9. DIAPP [Concomitant]
     Indication: PRODUCT USED FOR UNKNOWN INDICATION
     Dates: start: 20131220
  10. JUVELA [Concomitant]
     Indication: PRODUCT USED FOR UNKNOWN INDICATION
     Dates: start: 20130220
  11. GLYCERIN [Concomitant]
     Indication: PRODUCT USED FOR UNKNOWN INDICATION
     Dates: start: 20130520
  12. MAGNESIUM OXIDE [Concomitant]
     Indication: PRODUCT USED FOR UNKNOWN INDICATION
     Dates: start: 201305
  13. KEPPRA [Concomitant]
     Indication: PRODUCT USED FOR UNKNOWN INDICATION
     Dates: start: 20120730
  14. DEPAKENE [Concomitant]
     Indication: PRODUCT USED FOR UNKNOWN INDICATION
     Dates: start: 20130612
  15. RIVOTRIL [Concomitant]
     Indication: PRODUCT USED FOR UNKNOWN INDICATION
     Dates: start: 20111112

REACTIONS (2)
  - Pyrexia [Recovered/Resolved]
  - Bronchitis [Recovered/Resolved]
